FAERS Safety Report 6831783-9 (Version None)
Quarter: 2010Q3

REPORT INFORMATION
  Report Type: 
  Country: None (occurrence: None)
  Receive Date: 20100706
  Receipt Date: 20100625
  Transmission Date: 20110219
  Serious: Yes (Hospitalization, Other)
  Sender: FDA-Public Use
  Company Number: 2009SP043232

PATIENT
  Age: 73 Year
  Sex: Female

DRUGS (2)
  1. RIBAVIRIN [Suspect]
     Indication: HEPATITIS C
     Dosage: PO
     Route: 048
     Dates: start: 20060901, end: 20070701
  2. PEG INTERFERON (INTERFERONS) [Suspect]
     Indication: HEPATITIS C
     Dates: start: 20060901, end: 20070701

REACTIONS (5)
  - BONE MARROW FAILURE [None]
  - CARDIAC FAILURE CONGESTIVE [None]
  - DISEASE RECURRENCE [None]
  - NEPHROTIC SYNDROME [None]
  - RENAL FAILURE ACUTE [None]
